FAERS Safety Report 23738397 (Version 1)
Quarter: 2024Q2

REPORT INFORMATION
  Report Type: Report from Study
  Country: US (occurrence: US)
  Receive Date: 20240412
  Receipt Date: 20240412
  Transmission Date: 20240716
  Serious: Yes (Other)
  Sender: FDA-Public Use
  Company Number: US-BAYER-2024A049177

PATIENT
  Age: 68 Year
  Sex: Male

DRUGS (1)
  1. NUBEQA [Suspect]
     Active Substance: DAROLUTAMIDE
     Indication: Prostate cancer
     Dosage: 600 MG, BID
     Dates: start: 20230512

REACTIONS (5)
  - Deafness unilateral [Unknown]
  - Photosensitivity reaction [Unknown]
  - Photosensitivity reaction [Unknown]
  - Lacrimation increased [Unknown]
  - Vertigo [Unknown]
